FAERS Safety Report 15490247 (Version 1)
Quarter: 2018Q4

REPORT INFORMATION
  Report Type: Spontaneous
  Country: ES (occurrence: ES)
  Receive Date: 20181011
  Receipt Date: 20181011
  Transmission Date: 20190205
  Serious: Yes (Other)
  Sender: FDA-Public Use
  Company Number: ES-MYLANLABS-2018M1075308

PATIENT
  Age: 49 Year
  Sex: Female

DRUGS (3)
  1. TEMOZOLOMIDE. [Suspect]
     Active Substance: TEMOZOLOMIDE
     Indication: PHAEOCHROMOCYTOMA
     Dosage: 21/28-DAY REGIMEN
  2. DENOSUMAB [Concomitant]
     Active Substance: DENOSUMAB
     Indication: PHAEOCHROMOCYTOMA
  3. LANREOTIDE [Concomitant]
     Active Substance: LANREOTIDE
     Indication: PHAEOCHROMOCYTOMA

REACTIONS (2)
  - Off label use [Unknown]
  - Lymphopenia [Unknown]
